FAERS Safety Report 16053526 (Version 1)
Quarter: 2019Q1

REPORT INFORMATION
  Report Type: Spontaneous
  Country: US (occurrence: US)
  Receive Date: 20190308
  Receipt Date: 20190308
  Transmission Date: 20190418
  Serious: No
  Sender: FDA-Public Use
  Company Number: US-ABBVIE-19S-163-2690522-00

PATIENT
  Sex: Male

DRUGS (1)
  1. LUPRON DEPOT [Suspect]
     Active Substance: LEUPROLIDE ACETATE
     Indication: PAEDOPHILIA
     Route: 058

REACTIONS (1)
  - Blood testosterone increased [Not Recovered/Not Resolved]

NARRATIVE: CASE EVENT DATE: 20190126
